FAERS Safety Report 13433425 (Version 3)
Quarter: 2017Q2

REPORT INFORMATION
  Report Type: Report from Study
  Country: JP (occurrence: JP)
  Receive Date: 20170412
  Receipt Date: 20170428
  Transmission Date: 20170830
  Serious: Yes (Hospitalization)
  Sender: FDA-Public Use
  Company Number: JP-ASTRAZENECA-2017SE37837

PATIENT
  Age: 13759 Day
  Sex: Female
  Weight: 44 kg

DRUGS (8)
  1. TAPENTADOL [Concomitant]
     Active Substance: TAPENTADOL
     Indication: CANCER PAIN
     Route: 048
     Dates: start: 20161221
  2. DERMOSOL [Concomitant]
     Active Substance: CLOBETASOL PROPIONATE
     Indication: DERMATITIS ACNEIFORM
     Dosage: AS REQUIRED
     Dates: start: 20160414
  3. HEPARINOID [Concomitant]
     Active Substance: CHONDROITIN SULFATE (BOVINE)
     Indication: DERMATITIS ACNEIFORM
     Dosage: AS REQUIRED
     Dates: start: 20160310
  4. TAGRISSO [Suspect]
     Active Substance: OSIMERTINIB
     Indication: NON-SMALL CELL LUNG CANCER
     Route: 048
     Dates: start: 20161221, end: 20170317
  5. ASTOMIN [Concomitant]
     Active Substance: DIMEMORFAN
     Indication: COUGH
     Route: 048
     Dates: start: 20161110
  6. LOXOPROFEN SODIUM [Concomitant]
     Active Substance: LOXOPROFEN SODIUM
     Indication: CANCER PAIN
     Route: 048
     Dates: start: 20161216
  7. MINOCYCLINE HYDROCHLORIDE. [Concomitant]
     Active Substance: MINOCYCLINE HYDROCHLORIDE
     Indication: DERMATITIS ACNEIFORM
     Route: 048
     Dates: start: 20161216
  8. NEXIUM [Concomitant]
     Active Substance: ESOMEPRAZOLE MAGNESIUM
     Indication: PROPHYLAXIS AGAINST GASTROINTESTINAL ULCER
     Route: 048
     Dates: start: 20160203

REACTIONS (1)
  - Hepatic function abnormal [Recovered/Resolved]

NARRATIVE: CASE EVENT DATE: 20170316
